FAERS Safety Report 17925047 (Version 1)
Quarter: 2020Q2

REPORT INFORMATION
  Report Type: Spontaneous
  Country: US (occurrence: US)
  Receive Date: 20200622
  Receipt Date: 20200622
  Transmission Date: 20200714
  Serious: Yes (Other)
  Sender: FDA-Public Use
  Company Number: US-PURDUE PHARMA-USA-2020-0154844

PATIENT

DRUGS (1)
  1. OXYCONTIN [Suspect]
     Active Substance: OXYCODONE HYDROCHLORIDE
     Indication: GALLBLADDER OPERATION
     Dosage: UNK
     Route: 048

REACTIONS (3)
  - Drug abuse [Unknown]
  - Hepatitis C [Unknown]
  - Drug dependence [Unknown]

NARRATIVE: CASE EVENT DATE: 2006
